FAERS Safety Report 9705652 (Version 2)
Quarter: 2013Q4

REPORT INFORMATION
  Report Type: Spontaneous
  Country: US (occurrence: US)
  Receive Date: 20131122
  Receipt Date: 20131122
  Transmission Date: 20140711
  Serious: No
  Sender: FDA-Public Use
  Company Number: US-GILEAD-2008-0017157

PATIENT
  Sex: Female
  Weight: 52.16 kg

DRUGS (16)
  1. LETAIRIS [Suspect]
     Indication: PULMONARY ARTERIAL HYPERTENSION
     Route: 048
     Dates: start: 20070916
  2. LIPITOR [Concomitant]
     Route: 048
  3. DEMADEX [Concomitant]
     Dosage: AS DIRECTED
     Route: 048
  4. DIGOXIN [Concomitant]
     Dosage: AS DIRECTED
     Route: 048
  5. ALBUTEROL [Concomitant]
     Dosage: AS DIRECTED
     Route: 048
  6. SYNTHROID [Concomitant]
     Dosage: AS DIRECTED
     Route: 048
  7. SINGULAIR [Concomitant]
     Dosage: AS DIRECTED
     Route: 048
  8. ALLEGRA [Concomitant]
     Dosage: AS DIRECTED
     Route: 048
  9. MUCINEX [Concomitant]
     Dosage: AS DIRECTED
     Route: 048
  10. FLONASE 0.05% NASAL SPRAY [Concomitant]
     Dosage: AS DIRECTED
     Route: 045
  11. ASTELIN [Concomitant]
     Dosage: AS DIRECTED
     Route: 045
  12. K-DUR [Concomitant]
     Dosage: AS DIRECTED
     Route: 048
  13. DICYCLOMINE [Concomitant]
     Dosage: AS DIRECTED
     Route: 048
  14. PRILOSEC [Concomitant]
     Dosage: AS DIRECTED
     Route: 048
  15. MULTIVITAMIN [Concomitant]
     Dosage: AS DIRECTED
     Route: 048
  16. FIBERCON [Concomitant]
     Dosage: AS DIRECTED
     Route: 048

REACTIONS (1)
  - Liver function test abnormal [None]
